FAERS Safety Report 8770792 (Version 3)
Quarter: 2012Q4

REPORT INFORMATION
  Report Type: 
  Country: JP (occurrence: JP)
  Receive Date: 20120906
  Receipt Date: 20121018
  Transmission Date: 20130627
  Serious: Yes (Hospitalization)
  Sender: FDA-Public Use
  Company Number: JP-ASTRAZENECA-2012SE64633

PATIENT
  Age: 29 Year
  Sex: Female
  Weight: 49.9 kg

DRUGS (12)
  1. FK949E [Suspect]
     Indication: MAJOR DEPRESSION
     Route: 048
     Dates: start: 20120717, end: 20120812
  2. LEXAPRO [Suspect]
     Indication: MAJOR DEPRESSION
     Route: 048
     Dates: start: 20120410, end: 20120812
  3. GASLON N [Concomitant]
     Indication: GASTRITIS
  4. KAKKONTOU [Concomitant]
     Indication: NASOPHARYNGITIS
     Route: 048
     Dates: start: 20120811, end: 20120812
  5. KAKKONTOU [Concomitant]
     Indication: NASOPHARYNGITIS
     Route: 048
     Dates: start: 20120814, end: 20120815
  6. CEFAPICOL [Concomitant]
     Dosage: 1 g
     Route: 042
     Dates: start: 20120821, end: 20120821
  7. ADONA [Concomitant]
     Dosage: 50 mg
     Route: 042
     Dates: start: 20120821, end: 20120821
  8. LACTEC G [Concomitant]
     Dosage: 500 ml
     Dates: start: 20120817, end: 20120821
  9. EL-SOLUTION NO. 3 [Concomitant]
     Dosage: 500 to 1000 ml
     Dates: start: 20120817, end: 20120822
  10. BEASLIMIN [Concomitant]
     Dosage: 10 ml
     Dates: start: 20120817, end: 20120822
  11. GASTER [Concomitant]
     Dosage: 20 mg
     Dates: start: 20120817, end: 20120822
  12. AMIGRAND [Concomitant]
     Dosage: 500 ml
     Dates: start: 20120817, end: 20120822

REACTIONS (1)
  - Hepatitis acute [Recovered/Resolved]
